FAERS Safety Report 7722680-5 (Version None)
Quarter: 2011Q3

REPORT INFORMATION
  Report Type: 
  Country: None (occurrence: None)
  Receive Date: 20110831
  Receipt Date: 20110822
  Transmission Date: 20111222
  Serious: Yes (Hospitalization)
  Sender: FDA-Public Use
  Company Number: US-ASTRAZENECA-2011SE44368

PATIENT
  Age: 72 Year
  Sex: Female

DRUGS (5)
  1. NEXIUM [Suspect]
     Route: 048
     Dates: start: 20030101
  2. GAS-X [Concomitant]
  3. SYNTHROID [Concomitant]
  4. KAROFATE [Concomitant]
  5. SPIRIVA [Concomitant]

REACTIONS (4)
  - GASTRIC OPERATION [None]
  - NERVOUSNESS [None]
  - AUTOIMMUNE DISORDER [None]
  - CHRONIC OBSTRUCTIVE PULMONARY DISEASE [None]
